FAERS Safety Report 7232022-X (Version None)
Quarter: 2011Q1

REPORT INFORMATION
  Report Type: 
  Country: None (occurrence: None)
  Receive Date: 20110118
  Receipt Date: 20110104
  Transmission Date: 20110831
  Serious: Yes (Other)
  Sender: FDA-Public Use
  Company Number: CA-GENENTECH-299954

PATIENT
  Sex: Female
  Weight: 64 kg

DRUGS (2)
  1. XOLAIR [Suspect]
     Dosage: 150 MG, 1/MONTH
     Dates: start: 20100323
  2. XOLAIR [Suspect]
     Indication: ASTHMA
     Dosage: 150 MG, 1/MONTH
     Dates: start: 20070319

REACTIONS (6)
  - ASTHMA [None]
  - WHEEZING [None]
  - COUGH [None]
  - UPPER RESPIRATORY TRACT INFECTION [None]
  - SINUSITIS [None]
  - NASOPHARYNGITIS [None]
